FAERS Safety Report 14638670 (Version 3)
Quarter: 2018Q2

REPORT INFORMATION
  Report Type: Report from Study
  Country: GB (occurrence: GB)
  Receive Date: 20180314
  Receipt Date: 20180409
  Transmission Date: 20180711
  Serious: No
  Sender: FDA-Public Use
  Company Number: GB-BIOGEN-2018BI00540647

PATIENT
  Sex: Female

DRUGS (1)
  1. TECFIDERA [Suspect]
     Active Substance: DIMETHYL FUMARATE
     Indication: MULTIPLE SCLEROSIS
     Route: 065
     Dates: start: 2015

REACTIONS (14)
  - Gait disturbance [Unknown]
  - Skin burning sensation [Unknown]
  - Musculoskeletal disorder [Unknown]
  - Erythema [Unknown]
  - Hypoaesthesia [Not Recovered/Not Resolved]
  - Balance disorder [Unknown]
  - Pain in extremity [Unknown]
  - Speech disorder [Unknown]
  - Flushing [Recovered/Resolved]
  - Fatigue [Unknown]
  - Gastric infection [Unknown]
  - Paraesthesia [Unknown]
  - Drug dose omission [Unknown]
  - Herpes zoster [Not Recovered/Not Resolved]

NARRATIVE: CASE EVENT DATE: 2016
